FAERS Safety Report 15735856 (Version 1)
Quarter: 2018Q4

REPORT INFORMATION
  Report Type: Spontaneous
  Country: JP (occurrence: JP)
  Receive Date: 20181218
  Receipt Date: 20181218
  Transmission Date: 20190205
  Serious: Yes (Death)
  Sender: FDA-Public Use
  Company Number: JP-SHIONOGI, INC-2018002183

PATIENT

DRUGS (3)
  1. OXIFAST [Concomitant]
     Active Substance: OXYCODONE
     Indication: HEAD AND NECK CANCER
     Dosage: 40 MG, QD
     Route: 058
     Dates: start: 201809
  2. OXYCONTIN [Concomitant]
     Active Substance: OXYCODONE HYDROCHLORIDE
     Indication: HEAD AND NECK CANCER
     Route: 048
     Dates: start: 201808, end: 201809
  3. SYMPROIC [Suspect]
     Active Substance: NALDEMEDINE
     Indication: CONSTIPATION
     Dosage: 0.2 MG, QD
     Route: 048
     Dates: start: 201808, end: 201809

REACTIONS (1)
  - Head and neck cancer [Fatal]

NARRATIVE: CASE EVENT DATE: 201811
